FAERS Safety Report 25107538 (Version 1)
Quarter: 2025Q1

REPORT INFORMATION
  Report Type: Spontaneous
  Country: AU (occurrence: AU)
  Receive Date: 20250321
  Receipt Date: 20250321
  Transmission Date: 20250409
  Serious: Yes (Hospitalization)
  Sender: PRINSTON PHARMACEUTICAL
  Company Number: AU-PRINSTON PHARMACEUTICAL INC.-2025PRN00076

PATIENT
  Age: 57 Year
  Sex: Female

DRUGS (1)
  1. FINGOLIMOD [Suspect]
     Active Substance: FINGOLIMOD
     Indication: Relapsing-remitting multiple sclerosis
     Route: 048

REACTIONS (2)
  - Immune reconstitution inflammatory syndrome [Recovering/Resolving]
  - Meningitis cryptococcal [Recovering/Resolving]
